FAERS Safety Report 9169297 (Version 1)
Quarter: 2013Q1

REPORT INFORMATION
  Report Type: Spontaneous
  Country: IT (occurrence: IT)
  Receive Date: 20130318
  Receipt Date: 20130318
  Transmission Date: 20140127
  Serious: Yes (Hospitalization)
  Sender: FDA-Public Use
  Company Number: IT-ROCHE-660193

PATIENT
  Age: 48 Year
  Sex: Male

DRUGS (2)
  1. ROCEFIN [Suspect]
     Indication: ANTIBIOTIC PROPHYLAXIS
     Route: 065
     Dates: start: 20090917, end: 20090917
  2. PANTORC [Concomitant]
     Route: 065

REACTIONS (2)
  - Paraesthesia [Recovered/Resolved]
  - Urticaria [Recovered/Resolved]
